FAERS Safety Report 8352833-7 (Version None)
Quarter: 2012Q2

REPORT INFORMATION
  Report Type: 
  Country: None (occurrence: None)
  Receive Date: 20120509
  Receipt Date: 20120423
  Transmission Date: 20120825
  Serious: Yes (Hospitalization, Other)
  Sender: FDA-Public Use
  Company Number: 2012RR-55872

PATIENT
  Age: 78 Year
  Sex: Male

DRUGS (3)
  1. ACYCLOVIR SODIUM [Suspect]
     Indication: RASH VESICULAR
     Dosage: 400;200 MG, TID, DAILY, ORAL
     Route: 048
  2. ACYCLOVIR SODIUM [Suspect]
     Indication: PAIN
     Dosage: 400;200 MG, TID, DAILY, ORAL
     Route: 048
  3. ACYCLOVIR SODIUM [Suspect]
     Indication: RASH ERYTHEMATOUS
     Dosage: 400;200 MG, TID, DAILY, ORAL
     Route: 048

REACTIONS (5)
  - HALLUCINATION, VISUAL [None]
  - HAEMODIALYSIS [None]
  - ACCIDENTAL OVERDOSE [None]
  - APHASIA [None]
  - ATAXIA [None]
